FAERS Safety Report 22033520 (Version 1)
Quarter: 2023Q1

REPORT INFORMATION
  Report Type: Report from Study
  Country: KR (occurrence: KR)
  Receive Date: 20230224
  Receipt Date: 20230224
  Transmission Date: 20230417
  Serious: Yes (Hospitalization)
  Sender: FDA-Public Use
  Company Number: KR-GLAXOSMITHKLINE-KR2023GSK028132

PATIENT

DRUGS (9)
  1. FLUTICASONE FUROATE\UMECLIDINIUM BROMIDE\VILANTEROL TRIFENATATE [Suspect]
     Active Substance: FLUTICASONE FUROATE\UMECLIDINIUM BROMIDE\VILANTEROL TRIFENATATE
     Indication: Chronic obstructive pulmonary disease
     Dosage: UNK, QD
     Route: 055
     Dates: start: 20211103
  2. DOXOFYLLINE [Concomitant]
     Active Substance: DOXOFYLLINE
     Indication: Chronic obstructive pulmonary disease
     Dosage: 400 MG, BID
     Route: 048
     Dates: start: 20180308
  3. ASPIRIN [Concomitant]
     Active Substance: ASPIRIN
     Indication: Cerebral infarction
     Dosage: 100MG, QD
     Route: 048
     Dates: start: 20191211
  4. ALFUZOSIN HYDROCHLORIDE [Concomitant]
     Active Substance: ALFUZOSIN HYDROCHLORIDE
     Indication: Benign prostatic hyperplasia
     Dosage: 10MG, QD
     Route: 048
     Dates: start: 20200916
  5. MINIRIN [Concomitant]
     Active Substance: DESMOPRESSIN ACETATE
     Indication: Benign prostatic hyperplasia
     Dosage: 0.1 MG, QD
     Route: 048
     Dates: start: 20201222
  6. TOVIAZ PR [Concomitant]
     Indication: Benign prostatic hyperplasia
     Dosage: 4MG, QD
     Route: 048
     Dates: start: 20200929
  7. AVODART [Concomitant]
     Active Substance: DUTASTERIDE
     Indication: Benign prostatic hyperplasia
     Dosage: 0.5MG, QD
     Route: 048
     Dates: start: 20200916
  8. ARONAMIN C PLUS [Concomitant]
     Indication: Vitamin supplementation
     Dosage: 2 DF, QD
     Route: 048
     Dates: start: 20210407
  9. CAL-D3 [Concomitant]
     Indication: Vitamin supplementation
     Dosage: 480MG/1,000IU
     Route: 048
     Dates: start: 20201021

REACTIONS (1)
  - Hyponatraemia [Recovered/Resolved]

NARRATIVE: CASE EVENT DATE: 20220903
